FAERS Safety Report 17952277 (Version 1)
Quarter: 2020Q2

REPORT INFORMATION
  Report Type: Spontaneous
  Country: DK (occurrence: DK)
  Receive Date: 20200626
  Receipt Date: 20200626
  Transmission Date: 20200714
  Serious: Yes (Hospitalization)
  Sender: FDA-Public Use
  Company Number: NVSC2020DK173573

PATIENT
  Age: 79 Year
  Sex: Female

DRUGS (11)
  1. MAREVAN [Interacting]
     Active Substance: WARFARIN SODIUM
     Indication: THROMBOSIS PROPHYLAXIS
     Dosage: UNK (DOSIS: EFTER SKEMA (1-8 TABL. 1 GANG DAGLIGT) STYRKE: 2,5MG)
     Route: 048
     Dates: start: 201908
  2. PREDNISOLON [Concomitant]
     Active Substance: PREDNISOLONE
     Indication: ADRENOCORTICAL STEROID THERAPY
     Dosage: 37.5 MG, QD (STYRKE: 25MG)
     Route: 048
     Dates: start: 20191205
  3. GLYCERYLNITRAT [Concomitant]
     Indication: CHEST PAIN
     Dosage: 0.4 MG, PRN (STYRKE: 0,4MG/DOSIS) (SUBLINGUAL SPRAY)
     Route: 060
     Dates: start: 20190721
  4. PRAMIPEXOL AUROBINDO [Concomitant]
     Indication: PARKINSON^S DISEASE
     Dosage: 0.18 MG, QD (STYRKE: 0,088MG)
     Route: 048
     Dates: start: 20191107
  5. IMODIUM [Concomitant]
     Active Substance: LOPERAMIDE HYDROCHLORIDE
     Indication: DIARRHOEA
     Dosage: 4 MG, PRN (STYRKE: 2MG)
     Route: 048
     Dates: start: 20191117
  6. OXABENZ [Concomitant]
     Active Substance: OXAZEPAM
     Indication: SEDATIVE THERAPY
     Dosage: 15 MG, QD (STYRKE: 15MG)
     Route: 048
     Dates: start: 20200120
  7. IMADRAX [Suspect]
     Active Substance: AMOXICILLIN
     Indication: INFECTION
     Dosage: 1500 MG, QD(STYRKE: 500MG)
     Route: 048
     Dates: start: 20200228
  8. OXYNORM [Concomitant]
     Active Substance: OXYCODONE HYDROCHLORIDE
     Indication: PAIN
     Dosage: 10 MG, PRN (STYRKE: 10MG)
     Route: 048
     Dates: start: 20190728
  9. VENTOLINE [Concomitant]
     Active Substance: ALBUTEROL
     Indication: BRONCHOSPASM
     Dosage: 0.1 MG, PRN (STYRKE: 0,1MG/DOSIS)
     Route: 055
     Dates: start: 20191230
  10. AMLODIPINE [Concomitant]
     Active Substance: AMLODIPINE BESYLATE
     Indication: HYPERTENSION
     Dosage: 15 MG, QD (STYRKE: 10MG)
     Route: 048
     Dates: start: 20190718
  11. OLANZAPIN TEVA [Concomitant]
     Indication: SEDATIVE THERAPY
     Dosage: 2.5 MG, QD (STYRKE: 2,5MG)
     Route: 048
     Dates: start: 20200312

REACTIONS (2)
  - International normalised ratio increased [Not Recovered/Not Resolved]
  - Hepatic enzyme abnormal [Unknown]

NARRATIVE: CASE EVENT DATE: 202003
